FAERS Safety Report 18651714 (Version 2)
Quarter: 2021Q1

REPORT INFORMATION
  Report Type: Spontaneous
  Country: US (occurrence: US)
  Receive Date: 20201222
  Receipt Date: 20210319
  Transmission Date: 20210419
  Serious: Yes (Death, Other)
  Sender: FDA-Public Use
  Company Number: US-BRISTOL-MYERS SQUIBB COMPANY-BMS-2020-109915

PATIENT
  Sex: Female

DRUGS (1)
  1. SPRYCEL [Suspect]
     Active Substance: DASATINIB
     Indication: GLIOBLASTOMA
     Dosage: 140 MILLIGRAM, QD
     Route: 048

REACTIONS (2)
  - Intentional product use issue [Unknown]
  - Malignant neoplasm progression [Fatal]
